FAERS Safety Report 8505264-0 (Version None)
Quarter: 2012Q3

REPORT INFORMATION
  Report Type: 
  Country: None (occurrence: None)
  Receive Date: 20120712
  Receipt Date: 20120705
  Transmission Date: 20120928
  Serious: Yes (Hospitalization)
  Sender: FDA-Public Use
  Company Number: NL-B.I. PHARMACEUTICALS,INC./RIDGEFIELD-2012-RD-00397EU

PATIENT
  Sex: Female
  Weight: 60 kg

DRUGS (6)
  1. ACETAMINOPHEN W/ CODEINE [Suspect]
     Indication: CHRONIC OBSTRUCTIVE PULMONARY DISEASE
     Route: 048
     Dates: start: 20120627, end: 20120628
  2. ROCEPHIN [Suspect]
     Indication: PNEUMONIA
     Dosage: 2 G
     Route: 042
     Dates: start: 20120704
  3. PREDNISONE TAB [Suspect]
     Indication: CHRONIC OBSTRUCTIVE PULMONARY DISEASE
     Dosage: 50 MG
     Route: 042
     Dates: start: 20120704
  4. AMOXICILLIN [Suspect]
     Indication: CHRONIC OBSTRUCTIVE PULMONARY DISEASE
     Dosage: 1500 MG
     Route: 048
     Dates: start: 20120702, end: 20120704
  5. COMBIVENT [Suspect]
     Indication: CHRONIC OBSTRUCTIVE PULMONARY DISEASE
     Route: 055
     Dates: start: 20120704
  6. BLIND (BI 1744+TIOTROPIUM BROMIDE) [Suspect]
     Indication: CHRONIC OBSTRUCTIVE PULMONARY DISEASE
     Dates: start: 20111212, end: 20120704

REACTIONS (2)
  - PNEUMONIA [None]
  - CHRONIC OBSTRUCTIVE PULMONARY DISEASE [None]
